FAERS Safety Report 6844364-8 (Version None)
Quarter: 2010Q3

REPORT INFORMATION
  Report Type: 
  Country: None (occurrence: None)
  Receive Date: 20100715
  Receipt Date: 20100709
  Transmission Date: 20110219
  Serious: Yes (Hospitalization)
  Sender: FDA-Public Use
  Company Number: CA-ROCHE-714621

PATIENT
  Sex: Male
  Weight: 68 kg

DRUGS (8)
  1. BEVACIZUMAB [Suspect]
     Indication: GLIOBLASTOMA
     Dosage: FORM:INFUSION
     Route: 042
     Dates: start: 20100625
  2. CLOBAZAM [Concomitant]
  3. DIVALPROEX SODIUM [Concomitant]
  4. RABEPRAZOLE SODIUM [Concomitant]
  5. DEXAMETHASONE [Concomitant]
  6. FLAXSEED [Concomitant]
     Dosage: DRUG:FLAXSEED OIL
  7. CALCIUM [Concomitant]
  8. OMEGA [Concomitant]
     Dosage: DRUG: OMEGA 3

REACTIONS (1)
  - HYPERGLYCAEMIA [None]
